FAERS Safety Report 5677340-1 (Version None)
Quarter: 2008Q1

REPORT INFORMATION
  Report Type: 
  Country: None (occurrence: None)
  Receive Date: 20080320
  Receipt Date: 20080320
  Transmission Date: 20080703
  Serious: Yes (Other)
  Sender: FDA-Public Use
  Company Number: None

PATIENT
  Age: 30 Year
  Sex: Male
  Weight: 49.4421 kg

DRUGS (3)
  1. ZOLPIDEM [Suspect]
     Indication: INSOMNIA
     Dosage: ONE TABLET AT BEDTIME PO
     Route: 048
     Dates: start: 20080213, end: 20080228
  2. CITALOPRAM [Concomitant]
  3. SEROQUEL [Concomitant]

REACTIONS (3)
  - MEMORY IMPAIRMENT [None]
  - SLEEP TALKING [None]
  - SOMNAMBULISM [None]
